FAERS Safety Report 18762074 (Version 1)
Quarter: 2021Q1

REPORT INFORMATION
  Report Type: Spontaneous
  Country: US (occurrence: US)
  Receive Date: 20210120
  Receipt Date: 20210120
  Transmission Date: 20210419
  Serious: No
  Sender: FDA-Public Use
  Company Number: US-BAYER-2021-025618

PATIENT
  Sex: Female

DRUGS (2)
  1. EOVIST [Suspect]
     Active Substance: GADOXETATE DISODIUM
     Dosage: UNK
  2. COVID?19 VACCINE NOS. [Concomitant]
     Active Substance: COVID-19 VACCINE NOS
     Dosage: UNK

REACTIONS (1)
  - Drug hypersensitivity [None]
